FAERS Safety Report 6871477-7 (Version None)
Quarter: 2010Q3

REPORT INFORMATION
  Report Type: 
  Country: None (occurrence: None)
  Receive Date: 20100721
  Receipt Date: 20100615
  Transmission Date: 20110219
  Serious: Yes (Hospitalization, Other)
  Sender: FDA-Public Use
  Company Number: AUR-APL-2010-01599

PATIENT
  Age: 46 Year
  Sex: Male
  Weight: 112.93 kg

DRUGS (23)
  1. LISINOPRIL [Suspect]
     Indication: BLOOD PRESSURE
     Dosage: 10MG, ORAL
     Route: 048
  2. CHANTIX [Suspect]
     Indication: SMOKING CESSATION THERAPY
  3. CELEBREX [Suspect]
  4. TRICOR [Suspect]
     Indication: BLOOD CHOLESTEROL INCREASED
     Dosage: 145MG
     Dates: start: 20080901
  5. GRIFULVIN [Suspect]
     Indication: FUNGAL INFECTION
     Dates: start: 20080301, end: 20080301
  6. PROZAC [Suspect]
     Dosage: 60MG-DAILY-ORAL
     Route: 048
  7. RISPERIDONE [Suspect]
  8. WELCHOL [Suspect]
     Indication: BLOOD CHOLESTEROL
     Dosage: 650MG-TID-ORAL
     Route: 048
  9. OMEGA-3 MARINE TRIGLYCERIDES [Suspect]
     Indication: BLOOD CHOLESTEROL
     Dosage: 2G-BID-ORAL
     Route: 048
  10. OXCARBAZEPINE [Concomitant]
  11. MONTELUKAST SODIUM [Concomitant]
  12. TRAZODONE [Concomitant]
  13. LOVASTATIN [Concomitant]
  14. FLUOXETINE HCL [Concomitant]
  15. DOXYCYCLINE [Concomitant]
  16. TENIDAP SODIUM [Concomitant]
  17. TAMSULOSIN HCL [Concomitant]
  18. METFORMIN HCL [Concomitant]
  19. TRAMADOL HYDROCHLORIDE [Concomitant]
  20. DICLOFENAC [Concomitant]
  21. DEPAKOTE [Concomitant]
  22. ACTOS [Concomitant]
  23. BYETTA [Concomitant]

REACTIONS (36)
  - ABDOMINAL DISCOMFORT [None]
  - ABNORMAL BEHAVIOUR [None]
  - ABNORMAL DREAMS [None]
  - ANXIETY [None]
  - BACK PAIN [None]
  - BLOOD CHOLESTEROL INCREASED [None]
  - BLOOD POTASSIUM DECREASED [None]
  - CYSTITIS [None]
  - DIABETES MELLITUS INADEQUATE CONTROL [None]
  - DIARRHOEA [None]
  - DRUG DEPENDENCE [None]
  - DRUG EFFECT INCREASED [None]
  - DRUG INTERACTION [None]
  - FATIGUE [None]
  - FEAR [None]
  - FEELING ABNORMAL [None]
  - GASTROINTESTINAL DISORDER [None]
  - HEADACHE [None]
  - MEMORY IMPAIRMENT [None]
  - MOVEMENT DISORDER [None]
  - NAUSEA [None]
  - NERVOUSNESS [None]
  - ONYCHOMYCOSIS [None]
  - PHOTOPHOBIA [None]
  - PRODUCT QUALITY ISSUE [None]
  - PROSTATE INFECTION [None]
  - RASH [None]
  - RENAL FAILURE [None]
  - SCIATICA [None]
  - TOBACCO USER [None]
  - TREMOR [None]
  - TYPE 2 DIABETES MELLITUS [None]
  - URINARY TRACT INFECTION [None]
  - VISUAL IMPAIRMENT [None]
  - VOMITING [None]
  - WEIGHT DECREASED [None]
